FAERS Safety Report 17352374 (Version 2)
Quarter: 2020Q2

REPORT INFORMATION
  Report Type: Report from Study
  Country: US (occurrence: US)
  Receive Date: 20200130
  Receipt Date: 20200403
  Transmission Date: 20200713
  Serious: Yes (Hospitalization)
  Sender: FDA-Public Use
  Company Number: US-BIOGEN-2020BI00831790

PATIENT
  Age: 41 Year
  Sex: Male

DRUGS (1)
  1. TYSABRI [Suspect]
     Active Substance: NATALIZUMAB
     Indication: MULTIPLE SCLEROSIS
     Dosage: INFUSED FOR OVER 1 HOUR
     Route: 042
     Dates: start: 20191014

REACTIONS (14)
  - Malaise [Not Recovered/Not Resolved]
  - Pulmonary sepsis [Recovered/Resolved]
  - Ligament sprain [Unknown]
  - Sleep disorder [Unknown]
  - Immune system disorder [Not Recovered/Not Resolved]
  - Lung disorder [Recovered/Resolved]
  - Multiple sclerosis [Recovered/Resolved with Sequelae]
  - Fall [Recovered/Resolved]
  - Productive cough [Not Recovered/Not Resolved]
  - Eating disorder [Unknown]
  - Fatigue [Unknown]
  - Inappropriate schedule of product administration [Unknown]
  - Peripheral swelling [Unknown]
  - Depressed level of consciousness [Unknown]

NARRATIVE: CASE EVENT DATE: 201912
